FAERS Safety Report 4870201-7 (Version None)
Quarter: 2005Q4

REPORT INFORMATION
  Report Type: 
  Country: None (occurrence: None)
  Receive Date: 20051228
  Receipt Date: 20051216
  Transmission Date: 20060501
  Serious: Yes (Hospitalization, Other)
  Sender: FDA-Public Use
  Company Number: KII-2005-0020266

PATIENT
  Age: 28 Year
  Sex: Male

DRUGS (4)
  1. OXYCONTIN [Suspect]
     Indication: INTENTIONAL DRUG MISUSE
  2. BENZODIAZEPINE DERIVATIVES [Suspect]
     Indication: INTENTIONAL DRUG MISUSE
  3. PHENCYCLIDINE (PHENCYCLIDINE) [Suspect]
     Indication: INTENTIONAL DRUG MISUSE
  4. COCAINE (COCAINE) [Suspect]
     Indication: INTENTIONAL DRUG MISUSE

REACTIONS (7)
  - AGITATION [None]
  - BLOOD CREATINE PHOSPHOKINASE INCREASED [None]
  - BODY TEMPERATURE INCREASED [None]
  - COMA [None]
  - PNEUMOTHORAX [None]
  - POLYSUBSTANCE ABUSE [None]
  - RESPIRATORY RATE INCREASED [None]
